FAERS Safety Report 7346882-5 (Version None)
Quarter: 2011Q1

REPORT INFORMATION
  Report Type: 
  Country: None (occurrence: None)
  Receive Date: 20110302
  Receipt Date: 20110113
  Transmission Date: 20110831
  Serious: No
  Sender: FDA-Public Use
  Company Number: 2011-00017

PATIENT
  Age: 51 Year
  Sex: Male
  Weight: 113.3993 kg

DRUGS (3)
  1. ZICAM EXTREME CONGESTION RELIEF [Suspect]
     Dosage: QD X 3 MONTHS
     Dates: end: 20110112
  2. DIOVAN [Concomitant]
  3. C PAP MACHANE [Concomitant]

REACTIONS (1)
  - AGEUSIA [None]
